FAERS Safety Report 14769216 (Version 1)
Quarter: 2018Q2

REPORT INFORMATION
  Report Type: Not Available
  Country: US (occurrence: US)
  Receive Date: 20180417
  Receipt Date: 20180417
  Transmission Date: 20180711
  Serious: No
  Sender: FDA-Public Use
  Company Number: US-NEUROCRINE BIOSCIENCES INC.-2018NBI00598

PATIENT
  Sex: Male
  Weight: 88.08 kg

DRUGS (9)
  1. AGGRENOX [Concomitant]
     Active Substance: ASPIRIN\DIPYRIDAMOLE
     Dosage: 25-200 MG
  2. VALSARTAN. [Concomitant]
     Active Substance: VALSARTAN
  3. INGREZZA [Suspect]
     Active Substance: VALBENAZINE
     Indication: PARKINSONISM
     Route: 048
     Dates: start: 20170920, end: 20171127
  4. DILTIAZEM HCL [Concomitant]
     Active Substance: DILTIAZEM HYDROCHLORIDE
  5. RISPERIDONE. [Concomitant]
     Active Substance: RISPERIDONE
  6. VENLAFAXINE [Concomitant]
     Active Substance: VENLAFAXINE HYDROCHLORIDE
  7. INGREZZA [Suspect]
     Active Substance: VALBENAZINE
     Indication: TARDIVE DYSKINESIA
     Route: 048
     Dates: start: 20171128
  8. ATORVASTATIN [Concomitant]
     Active Substance: ATORVASTATIN
  9. TAMSULOSIN [Concomitant]
     Active Substance: TAMSULOSIN
     Dosage: 2 CAPSULES

REACTIONS (1)
  - Incontinence [Unknown]
